FAERS Safety Report 23702156 (Version 2)
Quarter: 2024Q2

REPORT INFORMATION
  Report Type: Spontaneous
  Country: US (occurrence: US)
  Receive Date: 20240403
  Receipt Date: 20240425
  Transmission Date: 20240716
  Serious: No
  Sender: FDA-Public Use
  Company Number: US-SA-SAC20240326000183

PATIENT
  Age: 2 Year
  Sex: Male

DRUGS (1)
  1. DUPIXENT [Suspect]
     Active Substance: DUPILUMAB
     Indication: Dermatitis atopic
     Dosage: 200MG Q4W
     Route: 058

REACTIONS (7)
  - Influenza [Unknown]
  - Decreased appetite [Unknown]
  - Skin fissures [Not Recovered/Not Resolved]
  - Erythema [Not Recovered/Not Resolved]
  - Pruritus [Unknown]
  - Injection site pain [Unknown]
  - Rash [Not Recovered/Not Resolved]
